FAERS Safety Report 15901377 (Version 9)
Quarter: 2020Q2

REPORT INFORMATION
  Report Type: Spontaneous
  Country: JP (occurrence: JP)
  Receive Date: 20190201
  Receipt Date: 20200415
  Transmission Date: 20200713
  Serious: Yes (Hospitalization, Other)
  Sender: FDA-Public Use
  Company Number: JP-UNITED THERAPEUTICS-UNT-2019-001846

PATIENT
  Age: 48 Year
  Sex: Female
  Weight: 44.7 kg

DRUGS (16)
  1. REMODULIN [Suspect]
     Active Substance: TREPROSTINIL
     Indication: PULMONARY ARTERIAL HYPERTENSION
     Dosage: 0.024 ?G/KG, CONTINUING
     Route: 058
  2. REMODULIN [Suspect]
     Active Substance: TREPROSTINIL
     Indication: PULMONARY HYPERTENSION
     Dosage: UNK UNK, CONTINUING
     Route: 041
  3. REMODULIN [Suspect]
     Active Substance: TREPROSTINIL
     Indication: PULMONARY ARTERIAL HYPERTENSION
  4. REMODULIN [Suspect]
     Active Substance: TREPROSTINIL
     Indication: PORTOPULMONARY HYPERTENSION
     Dosage: 0.0585 ?G/KG, CONTINUING
     Route: 058
     Dates: start: 2019
  5. FERROSTEC [Concomitant]
     Active Substance: SODIUM FERROUS CITRATE
     Indication: PRODUCT USED FOR UNKNOWN INDICATION
     Dosage: UNK
     Route: 048
     Dates: end: 20190107
  6. SPIRONOLACTONE. [Concomitant]
     Active Substance: SPIRONOLACTONE
     Indication: PRODUCT USED FOR UNKNOWN INDICATION
     Dosage: UNK
     Route: 048
  7. REMODULIN [Suspect]
     Active Substance: TREPROSTINIL
     Dosage: 0.0525 ?G/KG, CONTINUING
     Route: 058
  8. ADEMPAS [Concomitant]
     Active Substance: RIOCIGUAT
     Indication: PULMONARY ARTERIAL HYPERTENSION
     Dosage: UNK
     Route: 048
     Dates: start: 201809
  9. REMODULIN [Suspect]
     Active Substance: TREPROSTINIL
     Dosage: 0.0765 ?G/KG, CONTINUING
     Route: 058
     Dates: end: 20190423
  10. FUROSEMIDE. [Concomitant]
     Active Substance: FUROSEMIDE
     Indication: PRODUCT USED FOR UNKNOWN INDICATION
     Dosage: UNK
     Route: 048
  11. VENTAVIS [Concomitant]
     Active Substance: ILOPROST
     Indication: PULMONARY ARTERIAL HYPERTENSION
     Dosage: UNK
     Dates: start: 201811, end: 201812
  12. CALONAL [Concomitant]
     Active Substance: ACETAMINOPHEN
     Indication: PROPHYLAXIS
     Dosage: UNK
     Route: 048
     Dates: start: 20181211
  13. REMODULIN [Suspect]
     Active Substance: TREPROSTINIL
     Indication: PULMONARY HYPERTENSION
     Dosage: 0.08 ?G/KG, CONTINUING
     Route: 058
     Dates: start: 20181211
  14. REMODULIN [Suspect]
     Active Substance: TREPROSTINIL
     Indication: PORTOPULMONARY HYPERTENSION
  15. SAMSCA [Concomitant]
     Active Substance: TOLVAPTAN
     Indication: PRODUCT USED FOR UNKNOWN INDICATION
     Dosage: UNK
     Route: 048
     Dates: start: 20190114
  16. FERROUS SULFATE. [Concomitant]
     Active Substance: FERROUS SULFATE
     Indication: PRODUCT USED FOR UNKNOWN INDICATION
     Dosage: UNK
     Route: 048
     Dates: start: 20190108

REACTIONS (5)
  - Abdominal distension [Not Recovered/Not Resolved]
  - Anaemia [Not Recovered/Not Resolved]
  - Infusion site pain [Recovering/Resolving]
  - Nausea [Recovering/Resolving]
  - Cardiac failure [Not Recovered/Not Resolved]

NARRATIVE: CASE EVENT DATE: 20181214
